FAERS Safety Report 10402982 (Version 4)
Quarter: 2015Q2

REPORT INFORMATION
  Report Type: Report from Study
  Country: US (occurrence: US)
  Receive Date: 20140822
  Receipt Date: 20150526
  Transmission Date: 20150821
  Serious: Yes (Other)
  Sender: FDA-Public Use
  Company Number: US-SA-2014SA034743

PATIENT
  Age: 61 Year
  Sex: Female

DRUGS (2)
  1. AUBAGIO [Suspect]
     Active Substance: TERIFLUNOMIDE
     Indication: MULTIPLE SCLEROSIS
     Route: 048
     Dates: start: 20140224
  2. INSULIN [Concomitant]
     Active Substance: INSULIN NOS
     Indication: DIABETES MELLITUS

REACTIONS (8)
  - Gait disturbance [Unknown]
  - Urinary tract infection [Unknown]
  - Urinary incontinence [Unknown]
  - Faecal incontinence [Unknown]
  - Finger deformity [Unknown]
  - Pollakiuria [Unknown]
  - Condition aggravated [Unknown]
  - Micturition urgency [Unknown]

NARRATIVE: CASE EVENT DATE: 2014
